FAERS Safety Report 7952422-X (Version None)
Quarter: 2011Q4

REPORT INFORMATION
  Report Type: 
  Country: None (occurrence: None)
  Receive Date: 20111201
  Receipt Date: 20111126
  Transmission Date: 20120403
  Serious: Yes (Death)
  Sender: FDA-Public Use
  Company Number: US-GLAXOSMITHKLINE-A0955950A

PATIENT

DRUGS (1)
  1. PAXIL [Suspect]
     Indication: IRRITABLE BOWEL SYNDROME
     Route: 065

REACTIONS (4)
  - ANXIETY [None]
  - OFF LABEL USE [None]
  - COMPLETED SUICIDE [None]
  - DRUG WITHDRAWAL SYNDROME [None]
